FAERS Safety Report 23827503 (Version 1)
Quarter: 2024Q2

REPORT INFORMATION
  Report Type: Report from Study
  Country: US (occurrence: None)
  Receive Date: 20240507
  Receipt Date: 20240507
  Transmission Date: 20240716
  Serious: Yes (Other)
  Sender: FDA-Public Use
  Company Number: 2024A102585

PATIENT
  Sex: Male

DRUGS (1)
  1. CALQUENCE [Suspect]
     Active Substance: ACALABRUTINIB
     Indication: Chronic lymphocytic leukaemia
     Route: 048
     Dates: start: 202404

REACTIONS (6)
  - Pyrexia [Unknown]
  - Genital swelling [Unknown]
  - Peripheral swelling [Unknown]
  - Infection [Unknown]
  - Testicular swelling [Unknown]
  - Cough [Not Recovered/Not Resolved]
